FAERS Safety Report 6411601-3 (Version None)
Quarter: 2009Q4

REPORT INFORMATION
  Report Type: 
  Country: None (occurrence: None)
  Receive Date: 20091023
  Receipt Date: 20091015
  Transmission Date: 20100525
  Serious: Yes (Hospitalization)
  Sender: FDA-Public Use
  Company Number: JP-AMGEN-US370043

PATIENT
  Age: 50 Year
  Sex: Female

DRUGS (2)
  1. ENBREL [Suspect]
     Indication: RHEUMATOID ARTHRITIS
     Route: 058
     Dates: start: 20090706, end: 20091001
  2. PROGRAF [Concomitant]
     Route: 048
     Dates: start: 20090801, end: 20091001

REACTIONS (1)
  - TUBERCULOUS PLEURISY [None]
